FAERS Safety Report 11422067 (Version 1)
Quarter: 2015Q3

REPORT INFORMATION
  Report Type: Spontaneous
  Country: US (occurrence: None)
  Receive Date: 20150825
  Receipt Date: 20150825
  Transmission Date: 20151125
  Serious: Yes (Other)
  Sender: FDA-Public Use
  Company Number: US-2015INT000517

PATIENT
  Sex: Female

DRUGS (2)
  1. CARBOPLATIN (CARBOPLATIN) [Suspect]
     Active Substance: CARBOPLATIN
     Indication: PRODUCT USED FOR UNKNOWN INDICATION
  2. PACLITAXEL (PACLITAXEL) UNKNOWN [Suspect]
     Active Substance: PACLITAXEL
     Indication: PRODUCT USED FOR UNKNOWN INDICATION

REACTIONS (1)
  - Posterior reversible encephalopathy syndrome [None]
